FAERS Safety Report 5545210-5 (Version None)
Quarter: 2007Q4

REPORT INFORMATION
  Report Type: 
  Country: None (occurrence: None)
  Receive Date: 20071123
  Receipt Date: 20070213
  Transmission Date: 20080405
  Serious: Yes (Hospitalization)
  Sender: FDA-Public Use
  Company Number: US-JNJFOC-20070206456

PATIENT
  Age: 91 Year
  Sex: Male
  Weight: 63.5036 kg

DRUGS (3)
  1. LEVAQUIN [Suspect]
     Indication: LOWER RESPIRATORY TRACT INFECTION
     Dosage: 500 MG, IN 1 DAY,
     Dates: start: 20070212, end: 20070214
  2. ZETIA (CHOLESTEROL- AND TRIGLYCERIDE REDUCERS) UNSPECIFIED [Concomitant]
  3. ASA (ACETYLSALICYLIC ACID) UNSPECIFIED [Concomitant]

REACTIONS (4)
  - DIZZINESS [None]
  - HAEMATURIA [None]
  - HEADACHE [None]
  - PARAESTHESIA [None]
